FAERS Safety Report 13386758 (Version 2)
Quarter: 2017Q2

REPORT INFORMATION
  Report Type: Spontaneous
  Country: US (occurrence: US)
  Receive Date: 20170330
  Receipt Date: 20170406
  Transmission Date: 20170830
  Serious: Yes (Other)
  Sender: FDA-Public Use
  Company Number: US-PFIZER INC-2017139107

PATIENT
  Age: 79 Year
  Sex: Female
  Weight: 84 kg

DRUGS (2)
  1. LYRICA [Suspect]
     Active Substance: PREGABALIN
     Indication: TRIGEMINAL NEURALGIA
     Dosage: 75 MG, UNK
     Dates: start: 201703
  2. LYRICA [Suspect]
     Active Substance: PREGABALIN
     Indication: TRIGEMINAL NEURITIS
     Dosage: 1 DF, 2X/DAY, EVERY 12 HOURS
     Route: 048
     Dates: start: 20170321, end: 201703

REACTIONS (12)
  - Feeling abnormal [Unknown]
  - Asthenia [Not Recovered/Not Resolved]
  - Sedation [Not Recovered/Not Resolved]
  - Fall [Unknown]
  - Limb discomfort [Not Recovered/Not Resolved]
  - Abasia [Not Recovered/Not Resolved]
  - Somnolence [Not Recovered/Not Resolved]
  - Headache [Not Recovered/Not Resolved]
  - Muscle spasms [Unknown]
  - Fatigue [Unknown]
  - Dyskinesia [Not Recovered/Not Resolved]
  - Memory impairment [Unknown]

NARRATIVE: CASE EVENT DATE: 201703
